FAERS Safety Report 23896116 (Version 1)
Quarter: 2024Q2

REPORT INFORMATION
  Report Type: Spontaneous
  Country: US (occurrence: US)
  Receive Date: 20240524
  Receipt Date: 20240524
  Transmission Date: 20240715
  Serious: Yes (Hospitalization)
  Sender: FDA-Public Use
  Company Number: US-PFIZER INC-202400174966

PATIENT
  Sex: Female

DRUGS (5)
  1. XELJANZ XR [Suspect]
     Active Substance: TOFACITINIB CITRATE
     Indication: Rheumatoid arthritis
     Dosage: 11 MG, DAILY
     Route: 048
  2. XELJANZ XR [Suspect]
     Active Substance: TOFACITINIB CITRATE
     Indication: Psoriasis
  3. COSENTYX [Suspect]
     Active Substance: SECUKINUMAB
     Dosage: UNK
  4. HUMIRA [Suspect]
     Active Substance: ADALIMUMAB
     Dosage: UNK
  5. TREMFYA [Suspect]
     Active Substance: GUSELKUMAB
     Dosage: UNK

REACTIONS (3)
  - Urticaria [Recovered/Resolved]
  - Rash [Unknown]
  - Hypersensitivity [Recovered/Resolved]
